FAERS Safety Report 4428433-8 (Version None)
Quarter: 2004Q3

REPORT INFORMATION
  Report Type: 
  Country: None (occurrence: None)
  Receive Date: 20040813
  Receipt Date: 20040729
  Transmission Date: 20050211
  Serious: Yes (Hospitalization)
  Sender: FDA-Public Use
  Company Number: 04P-056-0268674-00

PATIENT
  Age: 1 Day
  Sex: Male
  Weight: 1 kg

DRUGS (5)
  1. KALETRA [Suspect]
  2. FERROUS SULFATE TAB [Suspect]
  3. FOLIC ACID [Suspect]
  4. VIRACEPT [Suspect]
     Dates: start: 20040219
  5. COMBIVIR [Suspect]

REACTIONS (3)
  - DRUG EXPOSURE DURING PREGNANCY [None]
  - NEONATAL RESPIRATORY DISTRESS SYNDROME [None]
  - PREMATURE BABY [None]
